FAERS Safety Report 6218095-1 (Version None)
Quarter: 2009Q2

REPORT INFORMATION
  Report Type: 
  Country: None (occurrence: None)
  Receive Date: 20090608
  Receipt Date: 20090527
  Transmission Date: 20091009
  Serious: Yes (Other)
  Sender: FDA-Public Use
  Company Number: PHEH2009US05317

PATIENT
  Age: 82 Year
  Sex: Female

DRUGS (2)
  1. DIOVAN [Suspect]
     Indication: HYPERTENSION
  2. TEKTURNA [Suspect]
     Indication: HYPERTENSION
     Route: 048

REACTIONS (2)
  - HYPERSENSITIVITY [None]
  - SWELLING FACE [None]
